FAERS Safety Report 10018907 (Version 2)
Quarter: 2014Q1

REPORT INFORMATION
  Report Type: Spontaneous
  Country: US (occurrence: US)
  Receive Date: 20140318
  Receipt Date: 20140325
  Transmission Date: 20141002
  Serious: Yes (Death)
  Sender: FDA-Public Use
  Company Number: US-009507513-1403USA007531

PATIENT
  Age: 42 Year
  Sex: Female

DRUGS (4)
  1. JANUVIA [Suspect]
     Indication: DIABETES MELLITUS
     Dosage: UNK
     Route: 048
     Dates: start: 20140121
  2. MORPHINE [Concomitant]
     Dosage: UNK
  3. PRAVACHOL [Concomitant]
     Dosage: UNK
  4. METFORMIN [Concomitant]
     Dosage: UNK

REACTIONS (4)
  - Death [Fatal]
  - Resuscitation [Unknown]
  - Eating disorder [Unknown]
  - Malaise [Unknown]
